FAERS Safety Report 21815009 (Version 1)
Quarter: 2023Q1

REPORT INFORMATION
  Report Type: Report from Study
  Country: GR (occurrence: GR)
  Receive Date: 20230104
  Receipt Date: 20230104
  Transmission Date: 20230418
  Serious: Yes (Death, Life-Threatening, Disabling, Other)
  Sender: FDA-Public Use
  Company Number: GR-ABBVIE-4256004

PATIENT
  Age: 76 Year
  Sex: Male
  Weight: 75 kg

DRUGS (2)
  1. VENETOCLAX [Suspect]
     Active Substance: VENETOCLAX
     Indication: Acute myeloid leukaemia
     Route: 048
     Dates: start: 20221215, end: 20221216
  2. AZACITIDINE [Suspect]
     Active Substance: AZACITIDINE
     Indication: Chronic lymphocytic leukaemia recurrent
     Route: 058
     Dates: start: 20221215, end: 20221216

REACTIONS (7)
  - Acute kidney injury [Fatal]
  - Blood creatinine increased [Not Recovered/Not Resolved]
  - Cardiovascular disorder [Fatal]
  - Circulatory collapse [Unknown]
  - Hypervolaemia [Fatal]
  - Endotracheal intubation [Unknown]
  - Pulmonary oedema [Unknown]

NARRATIVE: CASE EVENT DATE: 20221217
